FAERS Safety Report 4773235-6 (Version None)
Quarter: 2005Q3

REPORT INFORMATION
  Report Type: 
  Country: None (occurrence: None)
  Receive Date: 20050916
  Receipt Date: 20050907
  Transmission Date: 20060218
  Serious: Yes (Disabling, Other)
  Sender: FDA-Public Use
  Company Number: 2005125534

PATIENT
  Age: 47 Year
  Sex: Female
  Weight: 58.0604 kg

DRUGS (1)
  1. CELEBREX [Suspect]
     Indication: PLANTAR FASCIITIS
     Dosage: 200 MG (200 MG, 1 IN 1 D), ORAL
     Route: 048
     Dates: start: 19990601, end: 19990601

REACTIONS (12)
  - APHAGIA [None]
  - DRUG INEFFECTIVE [None]
  - DYSPHAGIA [None]
  - ESSENTIAL HYPERTENSION [None]
  - GASTROINTESTINAL MOTILITY DISORDER [None]
  - GINGIVAL OPERATION [None]
  - INJURY [None]
  - MENOPAUSE [None]
  - NASOPHARYNGITIS [None]
  - OESOPHAGEAL SPASM [None]
  - SINUSITIS [None]
  - WEIGHT DECREASED [None]
